FAERS Safety Report 18818050 (Version 4)
Quarter: 2021Q2

REPORT INFORMATION
  Report Type: Other
  Country: PT (occurrence: PT)
  Receive Date: 20210201
  Receipt Date: 20210529
  Transmission Date: 20210717
  Serious: Yes (Hospitalization, Disabling, Other)
  Sender: FDA-Public Use
  Company Number: PT-ROCHE-2760427

PATIENT
  Age: 70 Year
  Sex: Female

DRUGS (4)
  1. FOLICIL [Concomitant]
     Active Substance: FOLIC ACID
  2. ROACTEMRA [Suspect]
     Active Substance: TOCILIZUMAB
     Indication: RHEUMATOID ARTHRITIS
     Route: 058
     Dates: start: 20200403
  3. OMEPRAZOLE. [Concomitant]
     Active Substance: OMEPRAZOLE
     Dosage: FASTING EVERY DAY
  4. LEDERTREXATE [Concomitant]
     Active Substance: METHOTREXATE

REACTIONS (9)
  - Dyspnoea [Not Recovered/Not Resolved]
  - Ill-defined disorder [Recovered/Resolved]
  - Peripheral swelling [Not Recovered/Not Resolved]
  - Joint injury [Recovering/Resolving]
  - Cyst rupture [Unknown]
  - Fatigue [Not Recovered/Not Resolved]
  - Pulmonary oedema [Recovered/Resolved]
  - Arthralgia [Recovering/Resolving]
  - Peripheral swelling [Recovered/Resolved]

NARRATIVE: CASE EVENT DATE: 20210124
